FAERS Safety Report 13841425 (Version 1)
Quarter: 2017Q3

REPORT INFORMATION
  Report Type: Spontaneous
  Country: US (occurrence: US)
  Receive Date: 20170807
  Receipt Date: 20170807
  Transmission Date: 20171127
  Serious: No
  Sender: FDA-Public Use
  Company Number: US-CELLTRION INC.-2017US008185

PATIENT

DRUGS (9)
  1. INFLECTRA [Suspect]
     Active Substance: INFLIXIMAB-DYYB
     Indication: PROCTITIS ULCERATIVE
     Dosage: 450 MG (5 MG/KG), UNK
     Route: 042
     Dates: start: 20170605, end: 20170605
  2. ROXICET [Concomitant]
     Active Substance: ACETAMINOPHEN\OXYCODONE HYDROCHLORIDE
  3. NEURONTIN [Concomitant]
     Active Substance: GABAPENTIN
  4. LOPRESSOR [Concomitant]
     Active Substance: METOPROLOL TARTRATE
  5. AZATHIOPRINE. [Concomitant]
     Active Substance: AZATHIOPRINE
  6. ASPIRIN                            /00002701/ [Concomitant]
     Active Substance: ASPIRIN
  7. SEROQUEL [Concomitant]
     Active Substance: QUETIAPINE FUMARATE
  8. PANTOPRAZOLE [Concomitant]
     Active Substance: PANTOPRAZOLE
  9. ANUSOL HC                          /00028604/ [Concomitant]

REACTIONS (2)
  - Rash [Recovering/Resolving]
  - Arthralgia [Recovering/Resolving]
